FAERS Safety Report 8857966 (Version 1)
Quarter: 2012Q4

REPORT INFORMATION
  Report Type: 
  Country: US (occurrence: US)
  Receive Date: 20121024
  Receipt Date: 20121024
  Transmission Date: 20130627
  Serious: No
  Sender: FDA-Public Use
  Company Number: US-AMGEN-USASP2012003959

PATIENT
  Sex: Female

DRUGS (7)
  1. ENBREL [Suspect]
     Indication: PRODUCT USED FOR UNKNOWN INDICATION
     Dosage: 50 mg, qwk
     Route: 058
  2. PROAIR HFA [Concomitant]
  3. MUCINEX [Concomitant]
  4. LORATADINE [Concomitant]
     Dosage: 10 mg, UNK
  5. METHOTREXATE [Concomitant]
     Dosage: 2.5 mg, UNK
  6. FOLIC ACID [Concomitant]
  7. CHERATUSSIN AC [Concomitant]

REACTIONS (2)
  - Infection [Unknown]
  - Injection site erythema [Unknown]
